FAERS Safety Report 20010025 (Version 1)
Quarter: 2021Q4

REPORT INFORMATION
  Report Type: Spontaneous
  Country: US (occurrence: US)
  Receive Date: 20211029
  Receipt Date: 20211029
  Transmission Date: 20220303
  Serious: Yes (Other)
  Sender: FDA-Public Use
  Company Number: None

PATIENT
  Age: 51 Year
  Sex: Female

DRUGS (12)
  1. GABAPENTIN [Suspect]
     Active Substance: GABAPENTIN
     Indication: Trigeminal neuralgia
     Dosage: 300 MILLIGRAM, TAB
     Route: 065
  2. GABAPENTIN [Suspect]
     Active Substance: GABAPENTIN
     Dosage: 1 TABLETS, AT BED TIME
     Route: 065
  3. GABAPENTIN [Suspect]
     Active Substance: GABAPENTIN
     Dosage: 2 DOSAGE FORM (1 TAB NIGHT AND 1 TAB MORNING)
     Route: 065
  4. GABAPENTIN [Suspect]
     Active Substance: GABAPENTIN
     Dosage: 3 DOSAGE FORM, 2 TABS AT NIGHT AND 1 TAB IN THE MORNING
     Route: 065
  5. GABAPENTIN [Suspect]
     Active Substance: GABAPENTIN
     Dosage: 4 DOSAGE FORM, 2 TABS AT NIGHT AND 1 TAB IN THE MORNING AND 1 TAB AT LUNCH
     Route: 065
  6. GABAPENTIN [Suspect]
     Active Substance: GABAPENTIN
     Dosage: 300 MILLIGRAM, TID
     Route: 065
  7. CARBAMAZEPINE [Concomitant]
     Active Substance: CARBAMAZEPINE
     Indication: Trigeminal neuralgia
     Dosage: 200 MILLIGRAM
     Route: 065
  8. CARBAMAZEPINE [Concomitant]
     Active Substance: CARBAMAZEPINE
     Dosage: 50 MILLIGRAM, TID, 50 MG IN THE MORNING, 50 MG AT LUNCH AND 50 MG AT NIGHT
     Route: 065
  9. CARBAMAZEPINE [Concomitant]
     Active Substance: CARBAMAZEPINE
     Dosage: 50 MILLIGRAM, BID, 50 MG AM 50 MG NIGHT
     Route: 065
  10. CARBAMAZEPINE [Concomitant]
     Active Substance: CARBAMAZEPINE
     Dosage: 100 MILLIGRAM IN THE MORNING, 50 MILLIGRAM IN NIGHT (INCREASE 50 MG THE DOSAGE OF CARBAMAZEPINE IN T
     Route: 065
  11. CARBAMAZEPINE [Concomitant]
     Active Substance: CARBAMAZEPINE
     Dosage: 100 TO 150 MG/DAY
     Route: 065
  12. CARBAMAZEPINE [Concomitant]
     Active Substance: CARBAMAZEPINE
     Dosage: 100 MILLIGRAM, TID
     Route: 065

REACTIONS (5)
  - Panic attack [Unknown]
  - Anxiety [Unknown]
  - Muscular weakness [Unknown]
  - Tremor [Unknown]
  - Drug ineffective [Unknown]
